FAERS Safety Report 22091965 (Version 1)
Quarter: 2023Q1

REPORT INFORMATION
  Report Type: Spontaneous
  Country: US (occurrence: US)
  Receive Date: 20230314
  Receipt Date: 20230314
  Transmission Date: 20230418
  Serious: No
  Sender: FDA-Public Use
  Company Number: US-AMGEN-USASP2023041363

PATIENT
  Age: 77 Year
  Sex: Female

DRUGS (2)
  1. PROLIA [Suspect]
     Active Substance: DENOSUMAB
     Indication: Osteoporosis
     Dosage: UNK, UNK
     Route: 065
     Dates: start: 202205
  2. EVENITY [Suspect]
     Active Substance: ROMOSOZUMAB-AQQG
     Indication: Osteoporosis
     Dosage: UNK, UNK
     Route: 065

REACTIONS (5)
  - Fracture delayed union [Unknown]
  - Foot fracture [Recovering/Resolving]
  - Injection site erythema [Unknown]
  - Injection site swelling [Recovered/Resolved]
  - Injection site pruritus [Unknown]
